FAERS Safety Report 17325958 (Version 7)
Quarter: 2021Q1

REPORT INFORMATION
  Report Type: Spontaneous
  Country: US (occurrence: US)
  Receive Date: 20200127
  Receipt Date: 20210331
  Transmission Date: 20210419
  Serious: No
  Sender: FDA-Public Use
  Company Number: US-PFIZER INC-2020033357

PATIENT
  Age: 79 Year
  Sex: Female
  Weight: 64.41 kg

DRUGS (3)
  1. XELJANZ [Suspect]
     Active Substance: TOFACITINIB CITRATE
     Dosage: 10 MG, 2X/DAY
     Route: 048
  2. XELJANZ [Suspect]
     Active Substance: TOFACITINIB CITRATE
     Indication: RHEUMATOID ARTHRITIS
     Dosage: 5 MG, 2X/DAY
  3. XELJANZ [Suspect]
     Active Substance: TOFACITINIB CITRATE
     Dosage: 5 MG, 2X/DAY (TAKE 1 TAB BY MOUTH TWO TIMES A DAY)
     Route: 048
     Dates: start: 20201105

REACTIONS (5)
  - Pain [Unknown]
  - Memory impairment [Unknown]
  - Off label use [Unknown]
  - Cystitis [Unknown]
  - Confusional state [Unknown]
